FAERS Safety Report 7415117-7 (Version None)
Quarter: 2011Q2

REPORT INFORMATION
  Report Type: 
  Country: None (occurrence: None)
  Receive Date: 20110414
  Receipt Date: 20110331
  Transmission Date: 20111010
  Serious: Yes (Other)
  Sender: FDA-Public Use
  Company Number: PHHY2011FR26936

PATIENT
  Sex: Male

DRUGS (2)
  1. TEGRETOL [Suspect]
     Indication: MIGRAINE
     Dosage: 200 MG, (2 TO 3 TABLETS PER WEEK)
  2. TAREG [Suspect]
     Indication: HYPERTENSION
     Dosage: 80 MG, DAILY
     Route: 048
     Dates: end: 20110321

REACTIONS (4)
  - NYSTAGMUS [None]
  - VISUAL IMPAIRMENT [None]
  - VOMITING [None]
  - VERTIGO [None]
